FAERS Safety Report 4528577-6 (Version None)
Quarter: 2004Q4

REPORT INFORMATION
  Report Type: 
  Country: None (occurrence: None)
  Receive Date: 20041216
  Receipt Date: 20041207
  Transmission Date: 20050328
  Serious: Yes (Other)
  Sender: FDA-Public Use
  Company Number: PHFR2004GB04523

PATIENT
  Sex: Female

DRUGS (5)
  1. GLEEVEC [Suspect]
     Dosage: 400MG/DAY
     Route: 048
  2. GLEEVEC [Suspect]
     Dosage: 200MG/NOCTE
     Route: 048
  3. MADOPAR [Concomitant]
     Dosage: 125 MG, 6QD
     Route: 065
  4. SELEGILINE HCL [Concomitant]
     Dosage: 10MG/DAY
     Route: 065
  5. PERGOLIDE MESYLATE [Concomitant]
     Dosage: 250MG/DAY
     Route: 065

REACTIONS (2)
  - PARKINSON'S DISEASE [None]
  - PERIORBITAL OEDEMA [None]
